FAERS Safety Report 7413517-2 (Version None)
Quarter: 2011Q2

REPORT INFORMATION
  Report Type: 
  Country: None (occurrence: None)
  Receive Date: 20110413
  Receipt Date: 20110408
  Transmission Date: 20111010
  Serious: Yes (Hospitalization, Other)
  Sender: FDA-Public Use
  Company Number: US-PFIZER INC-2011041908

PATIENT
  Sex: Male
  Weight: 68 kg

DRUGS (3)
  1. ADVIL LIQUI-GELS [Suspect]
     Indication: HEADACHE
  2. VITAMINS [Concomitant]
     Indication: SUPPLEMENTATION THERAPY
     Dosage: UNK
  3. ADVIL LIQUI-GELS [Suspect]
     Indication: MUSCULOSKELETAL PAIN
     Dosage: UNK
     Route: 048

REACTIONS (7)
  - URTICARIA [None]
  - BLISTER [None]
  - ERYTHEMA [None]
  - SWELLING FACE [None]
  - RASH [None]
  - NONSPECIFIC REACTION [None]
  - PRURITUS [None]
